FAERS Safety Report 16741735 (Version 4)
Quarter: 2019Q4

REPORT INFORMATION
  Report Type: Spontaneous
  Country: FR (occurrence: FR)
  Receive Date: 20190826
  Receipt Date: 20191026
  Transmission Date: 20200122
  Serious: Yes (Other)
  Sender: FDA-Public Use
  Company Number: FR-AMGEN-FRASP2019134957

PATIENT
  Age: 66 Year
  Sex: Male
  Weight: 76 kg

DRUGS (8)
  1. VFEND [Suspect]
     Active Substance: VORICONAZOLE
     Indication: FUNGAEMIA
     Dosage: 6 MG/KG EVERY 12 HRS FOR 1 DAY
     Route: 042
     Dates: start: 20180718, end: 20180801
  2. BLINCYTO [Suspect]
     Active Substance: BLINATUMOMAB
     Indication: B PRECURSOR TYPE ACUTE LEUKAEMIA
     Dosage: 28 MICROGRAM, QD
     Route: 042
     Dates: start: 20180626, end: 20180715
  3. SKENAN [Concomitant]
     Active Substance: MORPHINE SULFATE
     Dosage: 10 MILLIGRAM, IN MORNING
  4. FORTUM [CEFTAZIDIME PENTAHYDRATE] [Concomitant]
     Active Substance: CEFTAZIDIME
  5. VFEND [Suspect]
     Active Substance: VORICONAZOLE
     Dosage: 2 MG/KG EVERY 12 HRS
     Route: 042
     Dates: start: 20180726
  6. VFEND [Suspect]
     Active Substance: VORICONAZOLE
     Dosage: 4 MG/KG EVERY 12 HRS, 2 DAY
     Route: 042
  7. SKENAN [Concomitant]
     Active Substance: MORPHINE SULFATE
     Dosage: 20 MILLIGRAM, IN EVENING
  8. LASILIX [Concomitant]
     Active Substance: FUROSEMIDE

REACTIONS (17)
  - Encephalopathy [Recovered/Resolved]
  - Herpes simplex viraemia [Recovered/Resolved]
  - Febrile neutropenia [Recovered/Resolved]
  - General physical health deterioration [Unknown]
  - Orchitis [Unknown]
  - Hyperaesthesia [Unknown]
  - Immunosuppression [Recovered/Resolved]
  - White blood cell count increased [Unknown]
  - Leukopenia [Recovered/Resolved]
  - Pneumocystis jirovecii pneumonia [Unknown]
  - Trichosporon infection [Recovered/Resolved]
  - Depression [Unknown]
  - Delirium [Recovered/Resolved]
  - Chest pain [Unknown]
  - Deep vein thrombosis [Unknown]
  - Acute kidney injury [Unknown]
  - Hallucination [Recovered/Resolved]

NARRATIVE: CASE EVENT DATE: 20180713
